FAERS Safety Report 11064679 (Version 2)
Quarter: 2015Q2

REPORT INFORMATION
  Report Type: Spontaneous
  Country: JP (occurrence: JP)
  Receive Date: 20150424
  Receipt Date: 20150505
  Transmission Date: 20150821
  Serious: Yes (Other)
  Sender: FDA-Public Use
  Company Number: JP-009507513-1503JPN010041

PATIENT
  Age: 80 Year
  Sex: Female
  Weight: 51 kg

DRUGS (11)
  1. PNEUMOVAX NP [Suspect]
     Active Substance: PNEUMOCOCCAL VACCINE, POLYVALENT 23
     Indication: PROPHYLAXIS
     Dosage: .5 ML
     Route: 058
     Dates: start: 20150311, end: 20150311
  2. CANDESARTAN CILEXETIL. [Concomitant]
     Active Substance: CANDESARTAN CILEXETIL
     Dosage: 8 MG, QD
     Route: 048
     Dates: start: 201410
  3. GOSHA-JINKI-GAN [Concomitant]
     Active Substance: HERBALS
     Dosage: 5 G, BID
     Route: 048
     Dates: start: 201412
  4. PREDNISOLONE. [Concomitant]
     Active Substance: PREDNISOLONE
     Dosage: 5 MG, BID
     Route: 048
  5. RINDERON VG [Concomitant]
     Active Substance: BETAMETHASONE VALERATE\GENTAMICIN SULFATE
     Dosage: 5 G, QD
     Route: 062
  6. ETICALM [Concomitant]
     Active Substance: ETIZOLAM
     Dosage: 0.5 MG, QD
     Route: 048
     Dates: start: 201309
  7. AMLODIPINE BESYLATE. [Concomitant]
     Active Substance: AMLODIPINE BESYLATE
     Dosage: 2.5 MG, QD, AMLODIPINE OD
     Route: 048
     Dates: start: 201412
  8. BETAHISTINE MESYLATE [Concomitant]
     Active Substance: BETAHISTINE MESILATE
     Dosage: 18 MG, TID
     Route: 048
     Dates: start: 201308
  9. PNEUMOVAX NP [Suspect]
     Active Substance: PNEUMOCOCCAL VACCINE, POLYVALENT 23
     Route: 051
  10. ATORVASTATIN [Concomitant]
     Active Substance: ATORVASTATIN
     Dosage: 5 MG, QD
     Route: 048
     Dates: start: 201306
  11. OMEPRAL [Concomitant]
     Active Substance: OMEPRAZOLE
     Dosage: 10 MG, QD
     Route: 048
     Dates: start: 200811

REACTIONS (5)
  - Injection site swelling [Recovered/Resolved]
  - Erythema [Not Recovered/Not Resolved]
  - Pain [Not Recovered/Not Resolved]
  - Pyrexia [Recovering/Resolving]
  - Injection site warmth [Recovered/Resolved]

NARRATIVE: CASE EVENT DATE: 20150312
